FAERS Safety Report 18098406 (Version 1)
Quarter: 2020Q3

REPORT INFORMATION
  Report Type: Spontaneous
  Country: US (occurrence: US)
  Receive Date: 20200731
  Receipt Date: 20200731
  Transmission Date: 20201103
  Serious: No
  Sender: FDA-Public Use
  Company Number: US-PFIZER INC-2020290223

PATIENT
  Age: 74 Year
  Sex: Female
  Weight: 70.76 kg

DRUGS (2)
  1. PREMARIN [Suspect]
     Active Substance: ESTROGENS, CONJUGATED
     Indication: HOT FLUSH
     Dosage: 0.5 MG, ALTERNATE DAY (ONE TABLET BY MOUTH ON ALTERNATING DAYS WITH 0.3MG DOSE)
     Route: 048
  2. PREMARIN [Suspect]
     Active Substance: ESTROGENS, CONJUGATED
     Dosage: 0.3 MG, ALTERNATE DAY (ONE TABLET BY MOUTH ON ALTERNATING DAYS WITH 0.5MG DOSE)
     Route: 048

REACTIONS (1)
  - Drug ineffective [Unknown]
